FAERS Safety Report 5901898-8 (Version None)
Quarter: 2008Q3

REPORT INFORMATION
  Report Type: 
  Country: None (occurrence: None)
  Receive Date: 20080929
  Receipt Date: 20080602
  Transmission Date: 20090109
  Serious: Yes (Life-Threatening)
  Sender: FDA-Public Use
  Company Number: PL-BAXTER-2008BH005765

PATIENT
  Age: 12 Year
  Sex: Male
  Weight: 60 kg

DRUGS (8)
  1. DEXTRAN 40/SODIUM CHLORIDE [Suspect]
     Indication: NEPHROTIC SYNDROME
     Dosage: DOSE UNIT:UNKNOWN
     Route: 042
     Dates: start: 20080404, end: 20080404
  2. SANDIMMUNE [Concomitant]
     Indication: NEPHROTIC SYNDROME
     Route: 048
     Dates: start: 20080404
  3. ENCORTON [Concomitant]
     Indication: NEPHROTIC SYNDROME
     Route: 048
     Dates: start: 20080404
  4. OMEPRAZOLE [Concomitant]
     Indication: NEPHROTIC SYNDROME
     Route: 048
     Dates: start: 20080404
  5. KALIPOZ [Concomitant]
     Indication: NEPHROTIC SYNDROME
     Route: 048
     Dates: start: 20080404
  6. HYDROCHLOROTHIAZIDE [Concomitant]
     Indication: NEPHROTIC SYNDROME
     Route: 048
     Dates: start: 20080403
  7. ALDACTONE [Concomitant]
     Indication: NEPHROTIC SYNDROME
     Route: 048
     Dates: start: 20080403
  8. FUROSEMIDE [Concomitant]
     Indication: NEPHROTIC SYNDROME
     Route: 048
     Dates: start: 20080403, end: 20080403

REACTIONS (6)
  - BREATH SOUNDS ABNORMAL [None]
  - CHEST DISCOMFORT [None]
  - DIZZINESS [None]
  - DYSPNOEA [None]
  - ERYTHEMA [None]
  - TACHYCARDIA [None]
